FAERS Safety Report 8617446 (Version 3)
Quarter: 2013Q1

REPORT INFORMATION
  Report Type: Spontaneous
  Country: US (occurrence: US)
  Receive Date: 20120615
  Receipt Date: 20130129
  Transmission Date: 20140127
  Serious: Yes (Hospitalization)
  Sender: FDA-Public Use
  Company Number: US-ELI_LILLY_AND_COMPANY-US201206002096

PATIENT
  Age: 78 Year
  Sex: Female

DRUGS (7)
  1. FORTEO [Suspect]
     Indication: OSTEOPOROSIS
     Dosage: 20 UG, QD
     Route: 058
     Dates: start: 20120427
  2. FORTEO [Suspect]
     Dosage: 20 UG, QD
     Route: 058
  3. FORTEO [Suspect]
     Dosage: 20 UG, QD
     Route: 058
  4. TYLENOL EXTRA STRENGTH [Concomitant]
     Dosage: UNK
  5. CALCIUM [Concomitant]
     Dosage: 1 TAB, BID
  6. CALCIUM [Concomitant]
     Dosage: 1 TAB, TID
  7. CALCIUM [Concomitant]
     Dosage: 1 TAB, BID

REACTIONS (10)
  - Anxiety [Recovered/Resolved]
  - Tremor [Recovered/Resolved]
  - Nervousness [Recovered/Resolved]
  - Hypertension [Recovered/Resolved]
  - Pain [Unknown]
  - Nausea [Recovered/Resolved]
  - Dizziness [Recovered/Resolved]
  - Decreased appetite [Unknown]
  - Muscle spasms [Unknown]
  - Blood calcium increased [Unknown]
